FAERS Safety Report 5694223-1 (Version None)
Quarter: 2008Q2

REPORT INFORMATION
  Report Type: 
  Country: None (occurrence: None)
  Receive Date: 20080404
  Receipt Date: 20080401
  Transmission Date: 20081010
  Serious: Yes (Other)
  Sender: FDA-Public Use
  Company Number: US-RB-000645-08

PATIENT
  Sex: Male
  Weight: 76.5 kg

DRUGS (9)
  1. SUBOXONE [Suspect]
     Route: 060
     Dates: start: 20070705, end: 20070806
  2. DIOVAN [Concomitant]
     Indication: HYPERTENSION
     Route: 048
  3. AMBIEN [Concomitant]
     Indication: INSOMNIA
     Route: 048
  4. GLUCOPHAGE [Concomitant]
     Route: 048
  5. CIPRO [Concomitant]
     Indication: URINARY TRACT INFECTION
     Route: 048
  6. ZIAC [Concomitant]
     Indication: HYPERTENSION
     Dosage: 1 TABLET EVERY DAY
     Route: 048
  7. LYRICA [Concomitant]
     Indication: BACK PAIN
     Route: 048
  8. FLEXERIL [Concomitant]
     Route: 048
  9. PREDNISONE [Concomitant]
     Indication: DRUG USE FOR UNKNOWN INDICATION
     Route: 048

REACTIONS (2)
  - CONVULSION [None]
  - DRUG WITHDRAWAL SYNDROME [None]
